FAERS Safety Report 8472739-2 (Version None)
Quarter: 2012Q2

REPORT INFORMATION
  Report Type: 
  Country: None (occurrence: None)
  Receive Date: 20120627
  Receipt Date: 20120615
  Transmission Date: 20120825
  Serious: Yes (Other)
  Sender: FDA-Public Use
  Company Number: JP-VERTEX PHARMACEUTICALS INC.-AE-2012-009102

PATIENT
  Age: 59 Year
  Sex: Female

DRUGS (8)
  1. TELAVIC (TELAPREVIR) [Suspect]
     Route: 048
     Dates: start: 20120509
  2. TELAVIC (TELAPREVIR) [Suspect]
     Route: 048
     Dates: start: 20120604
  3. TELAVIC (TELAPREVIR) [Suspect]
     Route: 048
     Dates: start: 20120613
  4. REBETOL [Concomitant]
     Route: 048
     Dates: start: 20120418
  5. PEG-INTRON [Concomitant]
     Indication: HEPATITIS C
     Route: 058
     Dates: start: 20120412, end: 20120501
  6. REBETOL [Concomitant]
     Indication: HEPATITIS C
     Route: 048
     Dates: start: 20120412
  7. PEG-INTRON [Concomitant]
     Route: 058
     Dates: start: 20120502, end: 20120613
  8. TELAVIC (TELAPREVIR) [Suspect]
     Indication: HEPATITIS C
     Route: 048
     Dates: start: 20120412, end: 20120508

REACTIONS (1)
  - SKIN DISORDER [None]
